FAERS Safety Report 5091563-4 (Version None)
Quarter: 2006Q3

REPORT INFORMATION
  Report Type: 
  Country: None (occurrence: None)
  Receive Date: 20060824
  Receipt Date: 20060706
  Transmission Date: 20061208
  Serious: Yes (Hospitalization)
  Sender: FDA-Public Use
  Company Number: POMP-10774

PATIENT
  Age: 17 Month
  Sex: Female
  Weight: 9.5 kg

DRUGS (7)
  1. MYOZYME [Suspect]
     Indication: GLYCOGEN STORAGE DISEASE TYPE II
     Dosage: 20 MG/KG Q2WKS IV
     Route: 042
     Dates: start: 20060623
  2. ALPHA-GLUCOSIDASE  (HUMAN, RECOMBINANT, CHO CELLS, GENZYME) [Suspect]
     Indication: GLYCOGEN STORAGE DISEASE TYPE II
     Dosage: 20 MG/KG Q2WKS IV
     Route: 042
     Dates: start: 20050707, end: 20060609
  3. DIGOXIN [Concomitant]
  4. LASIX [Concomitant]
  5. ENALAPRIL [Concomitant]
  6. PRILOSEC [Concomitant]
  7. METOCLOPRAMIDE [Concomitant]

REACTIONS (7)
  - CARDIAC FAILURE CONGESTIVE [None]
  - HYPOXIA [None]
  - ILEUS [None]
  - PYREXIA [None]
  - RESPIRATORY DISTRESS [None]
  - RETCHING [None]
  - VOMITING [None]
